FAERS Safety Report 6867409-8 (Version None)
Quarter: 2010Q3

REPORT INFORMATION
  Report Type: 
  Country: None (occurrence: None)
  Receive Date: 20100722
  Receipt Date: 20100719
  Transmission Date: 20110219
  Serious: Yes (Disabling, Other)
  Sender: FDA-Public Use
  Company Number: FR-BRISTOL-MYERS SQUIBB COMPANY-15135718

PATIENT
  Age: 65 Year
  Sex: Female

DRUGS (5)
  1. ABILIFY [Suspect]
     Indication: DEPRESSION
     Route: 048
  2. ABILIFY [Suspect]
     Indication: AFFECTIVE DISORDER
     Route: 048
  3. PROZAC [Concomitant]
     Dosage: TABS
     Route: 048
  4. MEPRONIZINE [Concomitant]
     Dosage: TABS
     Route: 048
  5. LORAZEPAM [Concomitant]
     Dosage: TABS
     Route: 048

REACTIONS (1)
  - PHLEBITIS [None]
